FAERS Safety Report 10540526 (Version 1)
Quarter: 2014Q4

REPORT INFORMATION
  Report Type: Spontaneous
  Country: DK (occurrence: None)
  Receive Date: 20141009
  Receipt Date: 20141009
  Transmission Date: 20150529
  Serious: Yes (Hospitalization)
  Sender: FDA-Public Use
  Company Number: 1000067726

PATIENT
  Age: 59 Year
  Sex: Male

DRUGS (9)
  1. NAPROSYN (NAPROXEN) [Concomitant]
  2. ASPIRIN (ACETYLSALICYLIC ACID) [Concomitant]
     Active Substance: ASPIRIN
  3. PLACEBO [Suspect]
     Active Substance: UNSPECIFIED INGREDIENT
     Indication: MAJOR DEPRESSION
     Route: 048
     Dates: start: 20110926, end: 20111119
  4. SIMVASTATIN. [Concomitant]
     Active Substance: SIMVASTATIN
  5. ATENOLOL. [Concomitant]
     Active Substance: ATENOLOL
  6. MAALOX (MAGNESIUM HYDROXIDE, ALUMINUM HYDROXIDE) [Concomitant]
  7. ESCITALOPRAM [Suspect]
     Active Substance: ESCITALOPRAM OXALATE
     Indication: MAJOR DEPRESSION
     Route: 048
     Dates: start: 20110926, end: 20111119
  8. PRAZOSIN HYDROCHLORIDE. [Concomitant]
     Active Substance: PRAZOSIN HYDROCHLORIDE
  9. HYDROCHLOROTHIAZIDE. [Concomitant]
     Active Substance: HYDROCHLOROTHIAZIDE

REACTIONS (1)
  - Syncope [None]

NARRATIVE: CASE EVENT DATE: 20111119
